FAERS Safety Report 21385960 (Version 1)
Quarter: 2022Q3

REPORT INFORMATION
  Report Type: Spontaneous
  Country: CN (occurrence: CN)
  Receive Date: 20220928
  Receipt Date: 20220928
  Transmission Date: 20221026
  Serious: Yes (Other)
  Sender: FDA-Public Use
  Company Number: CN-DENTSPLY-2022SCDP000285

PATIENT
  Sex: Female

DRUGS (1)
  1. LIDOCAINE [Suspect]
     Active Substance: LIDOCAINE
     Indication: Analgesic therapy
     Dosage: UNK

REACTIONS (7)
  - Haemorrhage [Unknown]
  - Respiratory depression [Unknown]
  - Pruritus [Unknown]
  - Nausea [Unknown]
  - Maternal exposure during delivery [Unknown]
  - Hypotension [Unknown]
  - Vomiting [Unknown]
